FAERS Safety Report 16845372 (Version 1)
Quarter: 2019Q4

REPORT INFORMATION
  Report Type: Spontaneous
  Country: US (occurrence: US)
  Receive Date: 20190924
  Receipt Date: 20190924
  Transmission Date: 20200122
  Serious: No
  Sender: FDA-Public Use
  Company Number: None

PATIENT
  Age: 29 Year
  Sex: Male
  Weight: 146.9 kg

DRUGS (2)
  1. BRAFTOVI [Suspect]
     Active Substance: ENCORAFENIB
     Indication: BRAIN NEOPLASM MALIGNANT
     Route: 048
     Dates: start: 20190730, end: 20190924
  2. MEKTOVI [Suspect]
     Active Substance: BINIMETINIB
     Indication: BRAIN NEOPLASM MALIGNANT
     Route: 048
     Dates: start: 20190730, end: 20190924

REACTIONS (1)
  - Disease progression [None]

NARRATIVE: CASE EVENT DATE: 20190924
